FAERS Safety Report 9498937 (Version 1)
Quarter: 2013Q3

REPORT INFORMATION
  Report Type: Spontaneous
  Country: US (occurrence: US)
  Receive Date: 20130904
  Receipt Date: 20130904
  Transmission Date: 20140515
  Serious: Yes (Other)
  Sender: FDA-Public Use
  Company Number: US-ELI_LILLY_AND_COMPANY-US201308008207

PATIENT
  Age: 52 Year
  Sex: 0

DRUGS (1)
  1. CYMBALTA [Suspect]

REACTIONS (2)
  - Suicidal behaviour [Unknown]
  - Cardiac disorder [Unknown]
